FAERS Safety Report 5011823-2 (Version None)
Quarter: 2006Q2

REPORT INFORMATION
  Report Type: 
  Country: None (occurrence: None)
  Receive Date: 20060526
  Receipt Date: 20060320
  Transmission Date: 20061013
  Serious: Yes (Death)
  Sender: FDA-Public Use
  Company Number: US-AVENTIS-200612796US

PATIENT
  Age: 55 Year
  Sex: Male

DRUGS (8)
  1. RIFAMPIN [Suspect]
     Indication: TUBERCULOSIS
     Dates: start: 20030611, end: 20030617
  2. RIFAMPIN [Suspect]
     Dates: start: 20030628, end: 20030821
  3. PYRAZINAMIDE [Suspect]
     Indication: TUBERCULOSIS
     Dates: start: 20030611, end: 20030617
  4. PYRAZINAMIDE [Suspect]
     Dates: start: 20030628, end: 20030821
  5. TYLENOL (GELTAB) [Concomitant]
     Dosage: DOSE: UNK
  6. IBUPROFEN [Concomitant]
     Dosage: DOSE: UNK
  7. PROZAC [Concomitant]
     Dosage: DOSE: UNK
  8. TUSSIN [Concomitant]
     Dosage: DOSE: UNK

REACTIONS (8)
  - ABDOMINAL PAIN [None]
  - ALANINE AMINOTRANSFERASE INCREASED [None]
  - ASCITES [None]
  - ASPARTATE AMINOTRANSFERASE INCREASED [None]
  - HEPATIC FAILURE [None]
  - HEPATIC NECROSIS [None]
  - JAUNDICE [None]
  - PULMONARY OEDEMA [None]
